FAERS Safety Report 5278773-8 (Version None)
Quarter: 2007Q1

REPORT INFORMATION
  Report Type: 
  Country: None (occurrence: None)
  Receive Date: 20061208
  Receipt Date: 20060504
  Transmission Date: 20070707
  Serious: Yes (Hospitalization, Other)
  Sender: FDA-Public Use
  Company Number: USA-2005-0021466

PATIENT
  Sex: Male

DRUGS (8)
  1. OXYCONTIN [Suspect]
     Indication: DRUG USE FOR UNKNOWN INDICATION
     Dosage: SEE TEXT
  2. NORCO [Concomitant]
  3. ARTHROTEC [Concomitant]
  4. VIOXX [Concomitant]
  5. CELEBREX [Concomitant]
  6. ELAVIL [Concomitant]
  7. ROBAXIN [Concomitant]
  8. NAPROXEN [Concomitant]

REACTIONS (31)
  - ACTIVITIES OF DAILY LIVING IMPAIRED [None]
  - ANXIETY [None]
  - ARTHRALGIA [None]
  - BACK PAIN [None]
  - DELUSIONAL DISORDER, UNSPECIFIED TYPE [None]
  - DEPRESSION [None]
  - DISCOMFORT [None]
  - DRUG DEPENDENCE [None]
  - DRUG EFFECT DECREASED [None]
  - DRUG INEFFECTIVE [None]
  - DRUG TOLERANCE INCREASED [None]
  - DRUG WITHDRAWAL SYNDROME [None]
  - EAR PAIN [None]
  - FALL [None]
  - FEELING JITTERY [None]
  - HYPERHIDROSIS [None]
  - INADEQUATE ANALGESIA [None]
  - INTENTIONAL DRUG MISUSE [None]
  - INTERVERTEBRAL DISC DEGENERATION [None]
  - MUSCLE SPASMS [None]
  - MYALGIA [None]
  - NASOPHARYNGITIS [None]
  - NECK PAIN [None]
  - NON-CARDIAC CHEST PAIN [None]
  - OBSESSIVE-COMPULSIVE DISORDER [None]
  - OTORRHOEA [None]
  - PAIN [None]
  - PAIN IN EXTREMITY [None]
  - PARAESTHESIA [None]
  - PARANOIA [None]
  - SWELLING [None]
